FAERS Safety Report 10746043 (Version 3)
Quarter: 2015Q2

REPORT INFORMATION
  Report Type: Report from Study
  Country: NL (occurrence: NL)
  Receive Date: 20150128
  Receipt Date: 20150401
  Transmission Date: 20150821
  Serious: Yes (Hospitalization)
  Sender: FDA-Public Use
  Company Number: NL-ABBVIE-13P-114-1158822-00

PATIENT
  Age: 65 Year
  Sex: Male
  Weight: 82 kg

DRUGS (2)
  1. LUPRON DEPOT [Suspect]
     Active Substance: LEUPROLIDE ACETATE
     Indication: PROSTATE CANCER
     Route: 058
     Dates: start: 20130410
  2. LUCRIN DEPOT [Suspect]
     Active Substance: LEUPROLIDE ACETATE
     Indication: PROSTATE CANCER
     Route: 058
     Dates: start: 20120510, end: 20130409

REACTIONS (8)
  - Nephrolithiasis [Not Recovered/Not Resolved]
  - Waist circumference increased [Not Recovered/Not Resolved]
  - Inguinal hernia [Recovered/Resolved]
  - Weight increased [Not Recovered/Not Resolved]
  - Anxiety [Unknown]
  - Injection site reaction [Not Recovered/Not Resolved]
  - Inguinal hernia [Recovered/Resolved]
  - Arthropathy [Not Recovered/Not Resolved]

NARRATIVE: CASE EVENT DATE: 201210
